FAERS Safety Report 10215831 (Version 2)
Quarter: 2014Q3

REPORT INFORMATION
  Report Type: Report from Study
  Country: BR (occurrence: BR)
  Receive Date: 20140604
  Receipt Date: 20140807
  Transmission Date: 20150326
  Serious: Yes (Hospitalization, Other)
  Sender: FDA-Public Use
  Company Number: PHHY2014BR067735

PATIENT
  Sex: Male
  Weight: 50 kg

DRUGS (1)
  1. ZOTEON PODHALER [Suspect]
     Active Substance: TOBRAMYCIN
     Indication: CYSTIC FIBROSIS
     Dosage: 3 CAPSULES 2 OR 3 TIMES A DAY
     Route: 055

REACTIONS (2)
  - Infection [Not Recovered/Not Resolved]
  - Lung disorder [Not Recovered/Not Resolved]
